FAERS Safety Report 6803822-2 (Version None)
Quarter: 2010Q2

REPORT INFORMATION
  Report Type: 
  Country: None (occurrence: None)
  Receive Date: 20100628
  Receipt Date: 20100619
  Transmission Date: 20101027
  Serious: Yes (Other)
  Sender: FDA-Public Use
  Company Number: US-PURDUE-USA-2010-0044634

PATIENT
  Age: 65 Year
  Sex: Female

DRUGS (4)
  1. OXYCONTIN [Suspect]
     Indication: FIBROMYALGIA
     Dosage: 20 MG, TID
     Route: 048
     Dates: start: 20010101
  2. OXYCONTIN [Suspect]
     Indication: PAIN
  3. PRILOSEC [Concomitant]
  4. ANTIHYPERTENSIVES [Concomitant]
     Indication: HYPERTENSION

REACTIONS (6)
  - ARTHRALGIA [None]
  - CRYING [None]
  - DRUG DEPENDENCE [None]
  - JOINT SWELLING [None]
  - PAIN [None]
  - SUICIDAL IDEATION [None]
